FAERS Safety Report 6420096-5 (Version None)
Quarter: 2009Q4

REPORT INFORMATION
  Report Type: 
  Country: None (occurrence: None)
  Receive Date: 20091029
  Receipt Date: 20091002
  Transmission Date: 20100525
  Serious: No
  Sender: FDA-Public Use
  Company Number: US-BAYER-200915250BCC

PATIENT
  Age: 53 Year
  Sex: Female
  Weight: 77 kg

DRUGS (1)
  1. MIDOL [Suspect]
     Indication: PAIN
     Dosage: TOTAL DAILY DOSE: 220 MG  UNIT DOSE: 220 MG
     Route: 048

REACTIONS (2)
  - FORMICATION [None]
  - RASH GENERALISED [None]
